FAERS Safety Report 8377686-2 (Version None)
Quarter: 2012Q2

REPORT INFORMATION
  Report Type: 
  Country: None (occurrence: None)
  Receive Date: 20120522
  Receipt Date: 20120517
  Transmission Date: 20120825
  Serious: Yes (Hospitalization)
  Sender: FDA-Public Use
  Company Number: US-GLAXOSMITHKLINE-A0888739A

PATIENT
  Age: 57 Year
  Sex: Female
  Weight: 92.7 kg

DRUGS (4)
  1. AVANDAMET [Suspect]
     Indication: DIABETES MELLITUS
     Route: 048
     Dates: start: 20041005, end: 20050401
  2. ZOCOR [Concomitant]
  3. AVANDIA [Suspect]
     Indication: DIABETES MELLITUS
     Dosage: 8MG PER DAY
     Route: 048
     Dates: start: 20040801, end: 20060701
  4. CRESTOR [Concomitant]

REACTIONS (5)
  - NEUROPATHY PERIPHERAL [None]
  - AMNESIA [None]
  - CORONARY ARTERY BYPASS [None]
  - MYOCARDIAL ISCHAEMIA [None]
  - CARDIAC FAILURE CONGESTIVE [None]
